FAERS Safety Report 13471083 (Version 1)
Quarter: 2017Q2

REPORT INFORMATION
  Report Type: Spontaneous
  Country: IE (occurrence: IE)
  Receive Date: 20170424
  Receipt Date: 20170424
  Transmission Date: 20170830
  Serious: Yes (Other)
  Sender: FDA-Public Use
  Company Number: IE-SUN PHARMACEUTICAL INDUSTRIES LTD-2017R1-133713

PATIENT
  Age: 53 Year
  Sex: Female

DRUGS (1)
  1. IMATINIB [Suspect]
     Active Substance: IMATINIB
     Indication: CHRONIC MYELOID LEUKAEMIA
     Dosage: 400 MG, QD
     Route: 065

REACTIONS (2)
  - Drug intolerance [Unknown]
  - Neutropenia [Recovering/Resolving]
